FAERS Safety Report 7595722-8 (Version None)
Quarter: 2011Q3

REPORT INFORMATION
  Report Type: 
  Country: None (occurrence: None)
  Receive Date: 20110707
  Receipt Date: 20110705
  Transmission Date: 20111222
  Serious: Yes (Life-Threatening, Hospitalization, Other)
  Sender: FDA-Public Use
  Company Number: FR-BRISTOL-MYERS SQUIBB COMPANY-15821440

PATIENT
  Age: 87 Year
  Sex: Female

DRUGS (8)
  1. IPERTEN [Concomitant]
     Dosage: AT NOON
  2. HYPERIUM [Concomitant]
  3. ASPIRIN [Concomitant]
  4. LUDIOMIL [Concomitant]
     Dosage: IN THE EVENING
  5. ZOLPIDEM [Concomitant]
     Dosage: IN THE EVENING
  6. ONGLYZA [Suspect]
     Route: 048
     Dates: start: 20110401, end: 20110408
  7. HYZAAR [Suspect]
     Dosage: 1DF=50MG/12.5MG
     Route: 048
  8. METFORMIN HCL [Suspect]
     Route: 048
     Dates: end: 20110401

REACTIONS (3)
  - RENAL FAILURE ACUTE [None]
  - CHOLELITHIASIS [None]
  - DIARRHOEA [None]
